FAERS Safety Report 8350526-3 (Version None)
Quarter: 2012Q2

REPORT INFORMATION
  Report Type: 
  Country: None (occurrence: None)
  Receive Date: 20120510
  Receipt Date: 20120501
  Transmission Date: 20120825
  Serious: Yes (Hospitalization, Other)
  Sender: FDA-Public Use
  Company Number: CA-JNJFOC-20120203351

PATIENT
  Sex: Male
  Weight: 49.9 kg

DRUGS (3)
  1. REMICADE [Suspect]
     Indication: CROHN'S DISEASE
     Route: 042
     Dates: start: 20091027, end: 20111206
  2. VALTREX [Concomitant]
     Route: 065
  3. IMURAN [Concomitant]
     Route: 065
     Dates: end: 20120501

REACTIONS (4)
  - PNEUMONIA [None]
  - PLATELET COUNT DECREASED [None]
  - HERPES ZOSTER [None]
  - INTERMITTENT CLAUDICATION [None]
